FAERS Safety Report 19319230 (Version 2)
Quarter: 2021Q3

REPORT INFORMATION
  Report Type: Report from Study
  Country: CN (occurrence: CN)
  Receive Date: 20210527
  Receipt Date: 20210709
  Transmission Date: 20211014
  Serious: Yes (Hospitalization)
  Sender: FDA-Public Use
  Company Number: CN-ASTRAZENECA-2021A348352

PATIENT
  Age: 21963 Day
  Sex: Male

DRUGS (35)
  1. DURVALUMAB. [Suspect]
     Active Substance: DURVALUMAB
     Indication: NON-SMALL CELL LUNG CANCER STAGE III
     Route: 042
     Dates: start: 20201009, end: 20201009
  2. DIPROPHYLLINE INJECTION [Concomitant]
     Indication: EMPHYSEMA
     Route: 042
     Dates: start: 20210106, end: 20210108
  3. DIPROPHYLLINE INJECTION [Concomitant]
     Indication: PNEUMONIA
     Route: 042
     Dates: start: 20210224
  4. BROMHEXIN HYDROCHLORIDE FOR INJECTION [Concomitant]
     Indication: BRONCHIECTASIS
     Route: 042
     Dates: start: 20210225, end: 20210307
  5. SALBUTAMOL SULFATE NEBULES INHALATION SOLUTION [Concomitant]
     Active Substance: ALBUTEROL SULFATE
     Indication: MUSCLE SPASMS
     Route: 055
     Dates: start: 20210420, end: 20210421
  6. DURVALUMAB. [Suspect]
     Active Substance: DURVALUMAB
     Indication: NON-SMALL CELL LUNG CANCER STAGE III
     Route: 042
     Dates: start: 20201106, end: 20201106
  7. DURVALUMAB. [Suspect]
     Active Substance: DURVALUMAB
     Indication: NON-SMALL CELL LUNG CANCER STAGE III
     Route: 042
     Dates: start: 20201204, end: 20201204
  8. BROMHEXIN HYDROCHLORIDE FOR INJECTION [Concomitant]
     Indication: BRONCHIECTASIS
     Route: 042
     Dates: start: 20210112, end: 20210117
  9. BUDESONIDE SUSPESION FOR INHALATION [Concomitant]
     Indication: ASTHMA
     Route: 055
     Dates: start: 20210420, end: 20210421
  10. CODEINE PHOSPHATE TABLETS [Concomitant]
     Active Substance: CODEINE PHOSPHATE
     Indication: ANTITUSSIVE THERAPY
     Route: 048
     Dates: start: 20210420, end: 20210421
  11. DURVALUMAB. [Suspect]
     Active Substance: DURVALUMAB
     Indication: NON-SMALL CELL LUNG CANCER STAGE III
     Route: 042
     Dates: start: 20200911, end: 20200911
  12. DIPROPHYLLINE INJECTION [Concomitant]
     Indication: EMPHYSEMA
     Route: 042
     Dates: start: 20210420, end: 20210421
  13. BROMHEXIN HYDROCHLORIDE FOR INJECTION [Concomitant]
     Indication: PNEUMONIA
     Route: 042
     Dates: start: 20210106, end: 20210111
  14. BROMHEXIN HYDROCHLORIDE FOR INJECTION [Concomitant]
     Indication: PNEUMONIA
     Route: 042
     Dates: start: 20210111, end: 20210112
  15. BROMHEXIN HYDROCHLORIDE FOR INJECTION [Concomitant]
     Indication: BRONCHIECTASIS
     Route: 042
     Dates: start: 20210420, end: 20210421
  16. SALBUTAMOL SULFATE AEROSOL INHALATION SOLUTION [Concomitant]
     Indication: MUSCLE SPASMS
     Route: 055
     Dates: start: 20210420, end: 20210421
  17. DURVALUMAB. [Suspect]
     Active Substance: DURVALUMAB
     Indication: NON-SMALL CELL LUNG CANCER STAGE III
     Route: 042
     Dates: start: 20210224, end: 20210224
  18. DIPROPHYLLINE INJECTION [Concomitant]
     Indication: EMPHYSEMA
     Route: 042
     Dates: start: 20210224
  19. METHYLPREDNISOLONE SODIUM SUCCINATE FOR INJECTION [Concomitant]
     Active Substance: METHYLPREDNISOLONE SODIUM SUCCINATE
     Indication: INFLAMMATION
     Route: 042
     Dates: start: 20210420, end: 20210421
  20. BROMHEXIN HYDROCHLORIDE FOR INJECTION [Concomitant]
     Indication: PNEUMONIA
     Route: 042
     Dates: start: 20210225, end: 20210307
  21. ACETYLCYSTEINE SOLUTION FOR INHALATION [Concomitant]
     Indication: COUGH
     Route: 055
     Dates: start: 20210420, end: 20210421
  22. ACETYLCYSTEINE SOLUTION FOR INHALATION [Concomitant]
     Indication: ASTHMA
     Route: 055
     Dates: start: 20210420, end: 20210421
  23. CODEINE PHOSPHATE TABLETS [Concomitant]
     Active Substance: CODEINE PHOSPHATE
     Indication: ANTITUSSIVE THERAPY
     Route: 048
     Dates: start: 20210223
  24. SALBUTAMOL SULFATE AEROSOL INHALATION SOLUTION [Concomitant]
     Indication: ASTHMA
     Route: 055
     Dates: start: 20210420, end: 20210421
  25. DIPROPHYLLINE INJECTION [Concomitant]
     Indication: PNEUMONIA
     Route: 042
     Dates: start: 20210106, end: 20210108
  26. BROMHEXIN HYDROCHLORIDE FOR INJECTION [Concomitant]
     Indication: PNEUMONIA
     Route: 042
     Dates: start: 20210112, end: 20210117
  27. BUDESONIDE SUSPESION FOR INHALATION [Concomitant]
     Indication: MUSCLE SPASMS
     Route: 055
     Dates: start: 20210420, end: 20210421
  28. SALBUTAMOL SULFATE NEBULES INHALATION SOLUTION [Concomitant]
     Active Substance: ALBUTEROL SULFATE
     Indication: ASTHMA
     Route: 055
     Dates: start: 20210420, end: 20210421
  29. BROMHEXIN HYDROCHLORIDE FOR INJECTION [Concomitant]
     Indication: BRONCHIECTASIS
     Route: 042
     Dates: start: 20210111, end: 20210112
  30. BROMHEXIN HYDROCHLORIDE FOR INJECTION [Concomitant]
     Indication: PNEUMONIA
     Route: 042
     Dates: start: 20210420, end: 20210421
  31. DURVALUMAB. [Suspect]
     Active Substance: DURVALUMAB
     Indication: NON-SMALL CELL LUNG CANCER STAGE III
     Route: 042
     Dates: start: 20201230, end: 20201230
  32. DURVALUMAB. [Suspect]
     Active Substance: DURVALUMAB
     Indication: NON-SMALL CELL LUNG CANCER STAGE III
     Route: 042
     Dates: start: 20210127, end: 20210127
  33. DURVALUMAB. [Suspect]
     Active Substance: DURVALUMAB
     Indication: NON-SMALL CELL LUNG CANCER STAGE III
     Route: 042
     Dates: start: 20210324, end: 20210324
  34. DIPROPHYLLINE INJECTION [Concomitant]
     Indication: PNEUMONIA
     Route: 042
     Dates: start: 20210420, end: 20210421
  35. BROMHEXIN HYDROCHLORIDE FOR INJECTION [Concomitant]
     Indication: BRONCHIECTASIS
     Route: 042
     Dates: start: 20210106, end: 20210111

REACTIONS (1)
  - Immune-mediated lung disease [Recovered/Resolved]

NARRATIVE: CASE EVENT DATE: 20210421
